FAERS Safety Report 23280704 (Version 2)
Quarter: 2023Q4

REPORT INFORMATION
  Report Type: Spontaneous
  Country: FR (occurrence: FR)
  Receive Date: 20231211
  Receipt Date: 20231215
  Transmission Date: 20240110
  Serious: Yes (Hospitalization, Disabling, Other)
  Sender: FDA-Public Use
  Company Number: FR-SA-2018SA268541

PATIENT
  Age: 28 Year
  Sex: Female
  Weight: 60 kg

DRUGS (43)
  1. CYPROTERONE ACETATE [Suspect]
     Active Substance: CYPROTERONE ACETATE
     Dosage: 0.5 DF, QD
     Route: 048
     Dates: start: 20100820, end: 201307
  2. CYPROTERONE ACETATE [Suspect]
     Active Substance: CYPROTERONE ACETATE
     Dosage: 0.5 DF, QD
     Route: 048
     Dates: start: 20161124
  3. CYPROTERONE ACETATE [Suspect]
     Active Substance: CYPROTERONE ACETATE
     Dosage: 0.5 DF, QD ?  TABLET/D FOR 21 DAYS PER MONTH
     Route: 048
     Dates: start: 20130816, end: 20140818
  4. CYPROTERONE ACETATE [Suspect]
     Active Substance: CYPROTERONE ACETATE
     Dosage: 0.5 DF, QD, 21 DAYS PER MONTH
     Route: 048
     Dates: start: 20100715
  5. CYPROTERONE ACETATE [Suspect]
     Active Substance: CYPROTERONE ACETATE
     Dosage: 0.5 DF, QD, 21 DAYS PER MONTH
     Route: 048
     Dates: start: 20101221, end: 20110705
  6. CYPROTERONE ACETATE [Suspect]
     Active Substance: CYPROTERONE ACETATE
     Dosage: 0.5 DF, QD, 21 DAYS PER MONTH
     Route: 048
     Dates: start: 20110705, end: 20110830
  7. CYPROTERONE ACETATE [Suspect]
     Active Substance: CYPROTERONE ACETATE
     Dosage: 0.5 DF, QD, 21 DAYS PER MONTH
     Route: 048
     Dates: start: 20110830
  8. CYPROTERONE ACETATE [Suspect]
     Active Substance: CYPROTERONE ACETATE
     Dosage: 0.5 DF, QD, 21 DAYS PER MONTH
     Route: 048
     Dates: end: 20130816
  9. CYPROTERONE ACETATE [Suspect]
     Active Substance: CYPROTERONE ACETATE
     Dosage: 0.5 DF, QD; FOR 21DAYS PER MONTH
     Route: 048
     Dates: start: 20140818, end: 20170510
  10. CYPROTERONE ACETATE [Suspect]
     Active Substance: CYPROTERONE ACETATE
     Indication: Alopecia
     Dosage: 1/2 TABLET FOR 21 DAYS PER MONTH
     Route: 065
     Dates: start: 20090705, end: 20100820
  11. CYPROTERONE ACETATE [Suspect]
     Active Substance: CYPROTERONE ACETATE
     Indication: Acne
     Dosage: 0.5 DF ?  TABLET/D FOR 21 DAYS PER MONTH
     Route: 048
     Dates: start: 20070528, end: 2009
  12. CYPROTERONE ACETATE [Suspect]
     Active Substance: CYPROTERONE ACETATE
     Dosage: 0.5 DF?  TABLET/D FOR 21 DAYS PER MONTH
     Route: 048
     Dates: start: 20170510, end: 20170920
  13. CYPROTERONE ACETATE [Suspect]
     Active Substance: CYPROTERONE ACETATE
     Indication: Contraception
     Dosage: UNK
     Route: 065
  14. CYPROTERONE ACETATE [Suspect]
     Active Substance: CYPROTERONE ACETATE
     Dosage: 0.5 DF (UG/LITRE), QD (FOR 21 DAYS PER MONTH)
     Route: 048
     Dates: start: 20170920
  15. CYPROTERONE ACETATE [Suspect]
     Active Substance: CYPROTERONE ACETATE
     Indication: Acne
     Dosage: 0.5 DF, QD
     Route: 048
     Dates: start: 20090705, end: 20100820
  16. CYPROTERONE ACETATE [Suspect]
     Active Substance: CYPROTERONE ACETATE
     Dosage: 0.5 DF, QD
     Route: 048
     Dates: start: 20101221, end: 20110705
  17. CYPROTERONE ACETATE [Suspect]
     Active Substance: CYPROTERONE ACETATE
     Dosage: 0.5 DF, QD
     Route: 048
     Dates: start: 20110705, end: 20110830
  18. CYPROTERONE ACETATE [Suspect]
     Active Substance: CYPROTERONE ACETATE
     Dosage: 0.5 DF, QD
     Route: 048
     Dates: start: 20130816, end: 20140818
  19. CYPROTERONE ACETATE [Suspect]
     Active Substance: CYPROTERONE ACETATE
     Dosage: 0.5 DF, QD
     Route: 048
     Dates: start: 20140818, end: 20170510
  20. CYPROTERONE ACETATE [Suspect]
     Active Substance: CYPROTERONE ACETATE
     Dosage: 0.5 DF, QD
     Route: 048
     Dates: start: 20170510, end: 20170920
  21. CYPROTERONE ACETATE [Suspect]
     Active Substance: CYPROTERONE ACETATE
     Dosage: 0.5 DF, QD (.5 DOSAGE FORMS DAILY)
     Route: 048
     Dates: start: 20100820
  22. CYPROTERONE ACETATE [Suspect]
     Active Substance: CYPROTERONE ACETATE
     Dosage: 0.5 DF, QD (.5 DOSAGE FORMS DAILY)
     Route: 048
     Dates: start: 20161124
  23. CYPROTERONE ACETATE [Suspect]
     Active Substance: CYPROTERONE ACETATE
     Dosage: 0.5 DF, QD (0.5 DF, QD, 21 DAYS PER MONTH)
     Route: 048
     Dates: start: 20100715
  24. CYPROTERONE ACETATE [Suspect]
     Active Substance: CYPROTERONE ACETATE
     Dosage: 0.5 DF, QD (0.5 DF, QD, 21 DAYS PER MONTH)
     Route: 048
     Dates: start: 20110830
  25. CYPROTERONE ACETATE [Suspect]
     Active Substance: CYPROTERONE ACETATE
     Dosage: 0.5 DF, QD, 21 DAYS PER MONTH
     Route: 048
     Dates: end: 20130816
  26. CYPROTERONE ACETATE [Suspect]
     Active Substance: CYPROTERONE ACETATE
     Indication: Alopecia
     Dosage: 0.5 DF (0.5 DF ?  TABLET/D FOR 21 DAYS PER MONTH)
     Route: 048
     Dates: start: 20070528, end: 2009
  27. CYPROTERONE ACETATE [Suspect]
     Active Substance: CYPROTERONE ACETATE
     Dosage: UNK (1/2 TABLET FOR 1 DAYS PER MONTH)
     Route: 048
  28. CYPROTERONE ACETATE\ETHINYL ESTRADIOL [Suspect]
     Active Substance: CYPROTERONE ACETATE\ETHINYL ESTRADIOL
     Indication: Alopecia
     Dosage: 2 MG, CONT
     Route: 048
     Dates: start: 1997
  29. CYPROTERONE ACETATE\ETHINYL ESTRADIOL [Suspect]
     Active Substance: CYPROTERONE ACETATE\ETHINYL ESTRADIOL
     Indication: Acne
  30. CYPROTERONE ACETATE [Suspect]
     Active Substance: CYPROTERONE ACETATE
     Indication: Product used for unknown indication
     Dosage: UNK, 2 MG
     Route: 065
  31. ESTRADIOL [Suspect]
     Active Substance: ESTRADIOL
     Dosage: 1 DF, QD
     Route: 048
     Dates: start: 20090705, end: 20170920
  32. ESTRADIOL [Suspect]
     Active Substance: ESTRADIOL
     Dosage: 1 DF, QD
     Route: 048
     Dates: start: 2008, end: 20170920
  33. ESTRADIOL [Suspect]
     Active Substance: ESTRADIOL
     Indication: Contraception
     Dosage: UNK
     Route: 048
     Dates: start: 20070528, end: 2009
  34. ESTRADIOL [Suspect]
     Active Substance: ESTRADIOL
     Dosage: UNK
     Route: 048
  35. MINOXIDIL [Concomitant]
     Active Substance: MINOXIDIL
     Indication: Alopecia
     Dosage: UNK
     Route: 065
  36. ESTRADIOL [Concomitant]
     Active Substance: ESTRADIOL
     Indication: Contraception
     Dosage: 2 MG
     Route: 065
     Dates: start: 2007
  37. ESTRADIOL [Concomitant]
     Active Substance: ESTRADIOL
     Dosage: 2 MG, UNK
     Route: 065
  38. ESTRADIOL [Concomitant]
     Active Substance: ESTRADIOL
     Dosage: UNK
     Route: 065
     Dates: start: 2009
  39. ESTRADIOL [Concomitant]
     Active Substance: ESTRADIOL
     Dosage: UNK
     Route: 065
  40. ESTRADIOL [Concomitant]
     Active Substance: ESTRADIOL
     Dosage: UNK
     Route: 065
  41. ESTRADIOL [Concomitant]
     Active Substance: ESTRADIOL
     Dosage: UNK
     Route: 065
  42. ESTRADIOL [Concomitant]
     Active Substance: ESTRADIOL
     Dosage: UNK
     Route: 065
  43. ESTRADIOL [Concomitant]
     Active Substance: ESTRADIOL
     Dosage: UNK MG
     Route: 065
     Dates: start: 201312

REACTIONS (58)
  - Hemiplegia [Unknown]
  - Hemiplegia [Not Recovered/Not Resolved]
  - Eye haematoma [Unknown]
  - Hemiparaesthesia [Not Recovered/Not Resolved]
  - Disorientation [Unknown]
  - Muscular weakness [Not Recovered/Not Resolved]
  - Cognitive disorder [Unknown]
  - Dysarthria [Not Recovered/Not Resolved]
  - Mobility decreased [Recovered/Resolved with Sequelae]
  - Diplopia [Not Recovered/Not Resolved]
  - Gait disturbance [Not Recovered/Not Resolved]
  - Nervous system disorder [Unknown]
  - Balance disorder [Recovered/Resolved with Sequelae]
  - Balance disorder [Not Recovered/Not Resolved]
  - Coordination abnormal [Not Recovered/Not Resolved]
  - Fatigue [Not Recovered/Not Resolved]
  - Paraesthesia [Not Recovered/Not Resolved]
  - Memory impairment [Recovered/Resolved with Sequelae]
  - Language disorder [Unknown]
  - Facial paralysis [Not Recovered/Not Resolved]
  - Cognitive disorder [Recovered/Resolved with Sequelae]
  - Hemiparesis [Unknown]
  - Executive dysfunction [Recovered/Resolved with Sequelae]
  - Disturbance in attention [Recovered/Resolved with Sequelae]
  - Formication [Recovered/Resolved with Sequelae]
  - Joint range of motion decreased [Recovered/Resolved with Sequelae]
  - Asthenia [Recovered/Resolved with Sequelae]
  - Partial seizures [Unknown]
  - Language disorder [Unknown]
  - Meningioma [Not Recovered/Not Resolved]
  - Fatigue [Recovered/Resolved with Sequelae]
  - Hemiparaesthesia [Unknown]
  - Brain herniation [Unknown]
  - Facial paralysis [Not Recovered/Not Resolved]
  - Paraesthesia [Recovered/Resolved with Sequelae]
  - Eye haematoma [Unknown]
  - Pain [Unknown]
  - Cerebral mass effect [Unknown]
  - Hypoaesthesia [Unknown]
  - Visual impairment [Unknown]
  - Speech disorder [Recovered/Resolved with Sequelae]
  - Neck pain [Unknown]
  - Aphasia [Unknown]
  - Disturbance in attention [Unknown]
  - Product dose omission issue [Unknown]
  - Dyskinesia [Unknown]
  - Product use in unapproved indication [Unknown]
  - Loss of personal independence in daily activities [Unknown]
  - Off label use [Unknown]
  - Weight increased [Not Recovered/Not Resolved]
  - Headache [Unknown]
  - Aphasia [Unknown]
  - Clumsiness [Unknown]
  - Low density lipoprotein increased [Unknown]
  - Blood follicle stimulating hormone increased [Unknown]
  - Vulvovaginal pruritus [Unknown]
  - Dysuria [Unknown]
  - Magnetic resonance imaging head abnormal [Unknown]

NARRATIVE: CASE EVENT DATE: 20070612
